FAERS Safety Report 21153437 (Version 1)
Quarter: 2022Q3

REPORT INFORMATION
  Report Type: Report from Study
  Country: IT (occurrence: IT)
  Receive Date: 20220731
  Receipt Date: 20220731
  Transmission Date: 20221027
  Serious: Yes (Hospitalization)
  Sender: FDA-Public Use
  Company Number: None

PATIENT
  Age: 34 Year
  Sex: Male

DRUGS (4)
  1. HALDOL [Suspect]
     Active Substance: HALOPERIDOL
     Indication: Drug abuse
     Dosage: ALOPERIDOLO 5 MG 13 CP
     Route: 048
     Dates: start: 20220719, end: 20220719
  2. ZOLOFT [Suspect]
     Active Substance: SERTRALINE HYDROCHLORIDE
     Indication: Drug abuse
     Dosage: ZOLOFT 50 MG 7 CP
     Route: 048
     Dates: start: 20220719, end: 20220719
  3. DELORAZEPAM [Suspect]
     Active Substance: DELORAZEPAM
     Indication: Drug abuse
     Dosage: DELORAZEPAM 2 MG 7 CP
     Route: 048
     Dates: start: 20220719, end: 20220719
  4. DIAZEPAM [Suspect]
     Active Substance: DIAZEPAM
     Indication: Drug abuse
     Route: 048
     Dates: start: 20220719, end: 20220719

REACTIONS (4)
  - Heart sounds abnormal [Recovering/Resolving]
  - Sopor [Recovering/Resolving]
  - Tachycardia [Recovering/Resolving]
  - Blood creatine phosphokinase increased [Unknown]

NARRATIVE: CASE EVENT DATE: 20220719
